FAERS Safety Report 9986697 (Version 1)
Quarter: 2014Q1

REPORT INFORMATION
  Report Type: Report from Study
  Country: US (occurrence: US)
  Receive Date: 20140307
  Receipt Date: 20140307
  Transmission Date: 20141002
  Serious: Yes (Hospitalization)
  Sender: FDA-Public Use
  Company Number: US-ABBVIE-13P-163-1082232-00

PATIENT
  Age: 57 Year
  Sex: Male
  Weight: 145.28 kg

DRUGS (3)
  1. HUMIRA [Suspect]
     Indication: RHEUMATOID ARTHRITIS
     Dates: start: 2011, end: 201210
  2. HUMIRA [Suspect]
     Indication: CROHN^S DISEASE
  3. METFORMIN [Concomitant]
     Indication: DIABETES MELLITUS

REACTIONS (1)
  - Abscess [Recovered/Resolved]
